FAERS Safety Report 5978992-9 (Version None)
Quarter: 2008Q4

REPORT INFORMATION
  Report Type: 
  Country: None (occurrence: None)
  Receive Date: 20081204
  Receipt Date: 20080520
  Transmission Date: 20090506
  Serious: No
  Sender: FDA-Public Use
  Company Number: US-ABBOTT-08P-163-0455371-00

PATIENT
  Age: 59 Year
  Sex: Male

DRUGS (2)
  1. TRICOR [Suspect]
     Indication: BLOOD TRIGLYCERIDES INCREASED
     Dosage: TAKE ONE IN THE EVENING WITH FOOD
  2. INEGY [Concomitant]
     Indication: DRUG USE FOR UNKNOWN INDICATION
     Dosage: 10 MG/ 40 MG IN THE MORNING

REACTIONS (2)
  - INFLUENZA LIKE ILLNESS [None]
  - NASAL CONGESTION [None]
